FAERS Safety Report 5185553-0 (Version None)
Quarter: 2006Q4

REPORT INFORMATION
  Report Type: 
  Country: None (occurrence: None)
  Receive Date: 20061220
  Receipt Date: 20050927
  Transmission Date: 20070319
  Serious: Yes (Disabling, Other)
  Sender: FDA-Public Use
  Company Number: US-BRISTOL-MYERS SQUIBB COMPANY-13123476

PATIENT
  Age: 54 Year
  Sex: Female
  Weight: 73 kg

DRUGS (10)
  1. PRAVACHOL [Suspect]
     Indication: BLOOD CHOLESTEROL INCREASED
     Route: 048
     Dates: start: 20050117
  2. VITAMIN E [Concomitant]
  3. CHONDROITIN SULFATE + GLUCOSAMINE [Concomitant]
  4. CALCIUM + VITAMIN D [Concomitant]
  5. ZYRTEC [Concomitant]
  6. PREDNISONE TAB [Concomitant]
  7. ALLEGRA [Concomitant]
  8. TRIAMCINOLONE [Concomitant]
  9. CLOBETASOL PROPIONATE [Concomitant]
  10. ZONALON [Concomitant]

REACTIONS (13)
  - CHEST PAIN [None]
  - DEPRESSED MOOD [None]
  - DERMATITIS [None]
  - HALLUCINATION [None]
  - HYPERTENSION [None]
  - INSOMNIA [None]
  - MASTOCYTOSIS [None]
  - MUSCULOSKELETAL STIFFNESS [None]
  - MYALGIA [None]
  - NERVOUSNESS [None]
  - OEDEMA PERIPHERAL [None]
  - PARAESTHESIA ORAL [None]
  - SUICIDAL IDEATION [None]
